FAERS Safety Report 15229126 (Version 1)
Quarter: 2018Q3

REPORT INFORMATION
  Report Type: Spontaneous
  Country: NO (occurrence: NO)
  Receive Date: 20180707
  Receipt Date: 20180707
  Transmission Date: 20181010
  Serious: Yes (Disabling)
  Sender: FDA-Public Use
  Company Number: None

PATIENT
  Age: 20 Year
  Sex: Male
  Weight: 65 kg

DRUGS (1)
  1. FINASTERIDE ACTAVIS [Suspect]
     Active Substance: FINASTERIDE
     Indication: ALOPECIA
     Dosage: ?          QUANTITY:1 TABLET(S);?
     Route: 048
     Dates: start: 20171120, end: 20180201

REACTIONS (6)
  - Male orgasmic disorder [None]
  - Semen volume decreased [None]
  - Loss of libido [None]
  - Erectile dysfunction [None]
  - Depression [None]
  - Hypoaesthesia [None]

NARRATIVE: CASE EVENT DATE: 20171201
